FAERS Safety Report 8711586 (Version 2)
Quarter: 2012Q4

REPORT INFORMATION
  Report Type: 
  Country: JP (occurrence: JP)
  Receive Date: 20120807
  Receipt Date: 20120829
  Transmission Date: 20130627
  Serious: Yes (Death, Hospitalization, Other)
  Sender: FDA-Public Use
  Company Number: JP-WATSON-2012-13371

PATIENT
  Age: 15 Year
  Sex: Male

DRUGS (2)
  1. FLUVOXAMINE (WATSON LABORATORIES) [Suspect]
     Indication: SOCIAL PHOBIA
     Dosage: 15 mg, single
     Route: 065
     Dates: start: 2009
  2. TANDOSPIRONE [Suspect]
     Indication: SOCIAL PHOBIA
     Dosage: 10 mg, single
     Route: 065

REACTIONS (13)
  - Serotonin syndrome [Fatal]
  - Overdose [Fatal]
  - Unresponsive to stimuli [Unknown]
  - Convulsion [Unknown]
  - Cardio-respiratory arrest [Unknown]
  - Metabolic acidosis [Unknown]
  - Rhabdomyolysis [Unknown]
  - Renal failure acute [Unknown]
  - Disseminated intravascular coagulation [Unknown]
  - Inflammation [Unknown]
  - Brain oedema [Unknown]
  - Pupil fixed [Unknown]
  - Mouth haemorrhage [Unknown]
